FAERS Safety Report 19241138 (Version 1)
Quarter: 2021Q2

REPORT INFORMATION
  Report Type: Spontaneous
  Country: US (occurrence: US)
  Receive Date: 20210510
  Receipt Date: 20210510
  Transmission Date: 20210717
  Serious: Yes (Death)
  Sender: FDA-Public Use
  Company Number: None

PATIENT
  Age: 56 Year
  Sex: Female

DRUGS (2)
  1. TACROLIMUS 1 MG [Suspect]
     Active Substance: TACROLIMUS
  2. MYFORTIC [Suspect]
     Active Substance: MYCOPHENOLATE SODIUM

REACTIONS (2)
  - COVID-19 [None]
  - Death [None]
